FAERS Safety Report 6661957-1 (Version None)
Quarter: 2010Q1

REPORT INFORMATION
  Report Type: 
  Country: None (occurrence: None)
  Receive Date: 20100331
  Receipt Date: 20091022
  Transmission Date: 20100710
  Serious: Yes (Other)
  Sender: FDA-Public Use
  Company Number: US-BRISTOL-MYERS SQUIBB COMPANY-14829576

PATIENT
  Sex: Male

DRUGS (2)
  1. ERBITUX [Suspect]
  2. BENADRYL [Concomitant]
     Indication: PREMEDICATION

REACTIONS (2)
  - DYSPNOEA [None]
  - SYNCOPE [None]
